FAERS Safety Report 7042756-8 (Version None)
Quarter: 2010Q4

REPORT INFORMATION
  Report Type: 
  Country: None (occurrence: None)
  Receive Date: 20101013
  Receipt Date: 20100212
  Transmission Date: 20110411
  Serious: No
  Sender: FDA-Public Use
  Company Number: US-ASTRAZENECA-2010SE06386

PATIENT
  Age: 73 Year
  Sex: Male
  Weight: 74.8 kg

DRUGS (9)
  1. SYMBICORT [Suspect]
     Dosage: 160/4.5 UG
     Route: 055
  2. FOSAMAX [Concomitant]
  3. LORAZEPAM [Concomitant]
  4. ZOCOR [Concomitant]
  5. ZITHROMAX [Concomitant]
  6. ALBUTEROL [Concomitant]
  7. THEOPHYLLINE [Concomitant]
  8. LISINOPRIL [Concomitant]
  9. MULTI-VITAMINS [Concomitant]

REACTIONS (2)
  - DYSPHONIA [None]
  - VISION BLURRED [None]
